FAERS Safety Report 9054757 (Version 1)
Quarter: 2013Q1

REPORT INFORMATION
  Report Type: Spontaneous
  Country: FR (occurrence: FR)
  Receive Date: 20130208
  Receipt Date: 20130208
  Transmission Date: 20140127
  Serious: Yes (Other)
  Sender: FDA-Public Use
  Company Number: FR-PFIZER INC-2013048583

PATIENT
  Age: 60 Year
  Sex: Female

DRUGS (1)
  1. EFFEXOR LP [Suspect]
     Dosage: UNK
     Dates: start: 2012

REACTIONS (2)
  - Asphyxia [Unknown]
  - Alopecia [Unknown]
